FAERS Safety Report 22632406 (Version 1)
Quarter: 2023Q2

REPORT INFORMATION
  Report Type: Spontaneous
  Country: US (occurrence: US)
  Receive Date: 20230623
  Receipt Date: 20230623
  Transmission Date: 20230721
  Serious: Yes (Other)
  Sender: FDA-Public Use
  Company Number: US-002147023-NVSC2023US140029

PATIENT
  Age: 69 Year
  Sex: Female

DRUGS (3)
  1. HYDROXYZINE [Suspect]
     Active Substance: HYDROXYZINE HYDROCHLORIDE
     Indication: Product used for unknown indication
     Route: 065
  2. VALBENAZINE [Suspect]
     Active Substance: VALBENAZINE
     Indication: Tardive dyskinesia
     Dosage: 80 MG, QD
     Route: 048
     Dates: start: 20210419
  3. VALBENAZINE [Suspect]
     Active Substance: VALBENAZINE
     Indication: Extrapyramidal disorder
     Dosage: 80 MG, QD
     Route: 048
     Dates: start: 20221010

REACTIONS (1)
  - Loss of consciousness [Unknown]
